FAERS Safety Report 15734640 (Version 1)
Quarter: 2018Q4

REPORT INFORMATION
  Report Type: Spontaneous
  Country: US (occurrence: US)
  Receive Date: 20181203
  Receipt Date: 20181203
  Transmission Date: 20190205
  Serious: No
  Sender: FDA-Public Use
  Company Number: None

PATIENT
  Age: 79 Year
  Sex: Female
  Weight: 54.43 kg

DRUGS (7)
  1. ZOLPIDEM [Concomitant]
     Active Substance: ZOLPIDEM\ZOLPIDEM TARTRATE
  2. VITAMIN D3 [Concomitant]
     Active Substance: CHOLECALCIFEROL
  3. PROBIOTIC [Concomitant]
     Active Substance: PROBIOTICS NOS
  4. CALCIUM [Concomitant]
     Active Substance: CALCIUM
  5. MIRALAX [Suspect]
     Active Substance: POLYETHYLENE GLYCOL 3350
  6. BIOTIN [Concomitant]
     Active Substance: BIOTIN
  7. PRIMIDONE 50MG [Suspect]
     Active Substance: PRIMIDONE
     Indication: FAMILIAL TREMOR
     Dosage: ?          QUANTITY:50 MG MILLIGRAM(S);?
     Route: 048

REACTIONS (1)
  - Dysstasia [None]

NARRATIVE: CASE EVENT DATE: 20181113
